FAERS Safety Report 9109526 (Version 1)
Quarter: 2013Q1

REPORT INFORMATION
  Report Type: Spontaneous
  Country: FR (occurrence: FR)
  Receive Date: 20130222
  Receipt Date: 20130222
  Transmission Date: 20140127
  Serious: Yes (Other)
  Sender: FDA-Public Use
  Company Number: PHHY2013FR016702

PATIENT
  Age: 33 None
  Sex: Female

DRUGS (1)
  1. AMOXICILLIN+CLAVULANATE SANDOZ [Suspect]
     Indication: ANTIBIOTIC PROPHYLAXIS
     Dosage: UNK UKN, UNK
     Route: 042
     Dates: start: 20111212

REACTIONS (2)
  - Anuria [Recovering/Resolving]
  - Medication crystals in urine [Recovering/Resolving]
